FAERS Safety Report 13286648 (Version 1)
Quarter: 2017Q1

REPORT INFORMATION
  Report Type: Spontaneous
  Country: US (occurrence: US)
  Receive Date: 20170302
  Receipt Date: 20170302
  Transmission Date: 20170428
  Serious: Yes (Hospitalization)
  Sender: FDA-Public Use
  Company Number: US-PFIZER INC-2015297073

PATIENT
  Age: 32 Year
  Sex: Female
  Weight: 159.4 kg

DRUGS (17)
  1. SOMATULINE DEPOT [Concomitant]
     Active Substance: LANREOTIDE ACETATE
     Dosage: 90 MG, UNK
     Route: 058
     Dates: start: 201604
  2. DYMISTA [Concomitant]
     Active Substance: AZELASTINE HYDROCHLORIDE\FLUTICASONE PROPIONATE
     Dosage: 137 UG-50 UG, 2X/DAY
     Route: 045
  3. NORCO [Concomitant]
     Active Substance: ACETAMINOPHEN\HYDROCODONE BITARTRATE
     Indication: PAIN
     Dosage: 10 MG-325 MG, AS NEEDED (EVERY FOUR HOURS)
     Route: 048
  4. SYNTHROID [Concomitant]
     Active Substance: LEVOTHYROXINE SODIUM
     Dosage: 88 UG, DAILY
     Route: 048
  5. LINZESS [Concomitant]
     Active Substance: LINACLOTIDE
     Dosage: 145 UG, DAILY
     Route: 048
  6. PRILOSEC [Concomitant]
     Active Substance: OMEPRAZOLE MAGNESIUM
     Dosage: 40 MG, DAILY
     Route: 048
  7. SINGULAIR [Concomitant]
     Active Substance: MONTELUKAST SODIUM
     Dosage: UNK, DAILY
  8. SOMATULINE DEPOT [Concomitant]
     Active Substance: LANREOTIDE ACETATE
     Dosage: 120 MG, MONTHLY (EVERY FOUR WEEK)
     Route: 058
  9. PHENERGAN [Concomitant]
     Active Substance: PROMETHAZINE HYDROCHLORIDE
     Dosage: UNK
  10. VITAMIN D3 [Concomitant]
     Active Substance: CHOLECALCIFEROL
     Dosage: 5000 IU, DAILY
     Route: 048
  11. SOMAVERT [Suspect]
     Active Substance: PEGVISOMANT
     Indication: GIGANTISM
     Dosage: 40 MG, UNK
     Dates: start: 201507, end: 2016
  12. SOMAVERT [Suspect]
     Active Substance: PEGVISOMANT
     Dosage: 10 MG, UNK
     Dates: end: 2016
  13. SANDOSTATIN [Suspect]
     Active Substance: OCTREOTIDE ACETATE
     Dosage: UNK
     Dates: start: 201507
  14. BENADRYL [Concomitant]
     Active Substance: DIPHENHYDRAMINE HYDROCHLORIDE
     Dosage: UNK
  15. HYDROCHLOROTHIAZIDE W/LISINOPRIL [Concomitant]
     Active Substance: HYDROCHLOROTHIAZIDE\LISINOPRIL
     Dosage: 25 MG-20 MG, DAILY
     Route: 048
  16. VITAMIN D [Concomitant]
     Active Substance: CHOLECALCIFEROL
     Dosage: UNK, DAILY
     Route: 048
  17. SOMAVERT [Suspect]
     Active Substance: PEGVISOMANT
     Indication: ACROMEGALY
     Dosage: 20 MG, UNK
     Dates: start: 20150702

REACTIONS (3)
  - Hyperhidrosis [Unknown]
  - Diarrhoea [Unknown]
  - Nausea [Unknown]
